FAERS Safety Report 10246221 (Version 1)
Quarter: 2014Q2

REPORT INFORMATION
  Report Type: Spontaneous
  Country: US (occurrence: US)
  Receive Date: 20140619
  Receipt Date: 20140619
  Transmission Date: 20141212
  Serious: No
  Sender: FDA-Public Use
  Company Number: US-009507513-1406USA001143

PATIENT
  Sex: Female

DRUGS (1)
  1. OXYTROL FOR WOMEN [Suspect]
     Indication: URINARY TRACT DISORDER
     Dosage: UNK, UNKNOWN
     Route: 062

REACTIONS (3)
  - Dehydration [Unknown]
  - Asthenia [Unknown]
  - Drug ineffective [Unknown]
